FAERS Safety Report 8278875-8 (Version None)
Quarter: 2012Q2

REPORT INFORMATION
  Report Type: 
  Country: None (occurrence: None)
  Receive Date: 20120412
  Receipt Date: 20111128
  Transmission Date: 20120825
  Serious: No
  Sender: FDA-Public Use
  Company Number: US-ASTRAZENECA-2010SE52994

PATIENT
  Age: 72 Year
  Sex: Female

DRUGS (3)
  1. OMEPRAZOLE [Suspect]
     Route: 048
  2. NEXIUM [Suspect]
     Route: 048
  3. PREVACID [Concomitant]

REACTIONS (6)
  - ABDOMINAL PAIN [None]
  - BARRETT'S OESOPHAGUS [None]
  - DRUG DOSE OMISSION [None]
  - DYSPEPSIA [None]
  - DYSPNOEA [None]
  - DRUG INEFFECTIVE [None]
